FAERS Safety Report 7766115-5 (Version None)
Quarter: 2011Q3

REPORT INFORMATION
  Report Type: 
  Country: None (occurrence: None)
  Receive Date: 20110921
  Receipt Date: 20110915
  Transmission Date: 20111222
  Serious: Yes (Hospitalization, Other)
  Sender: FDA-Public Use
  Company Number: TW-GENENTECH-323192

PATIENT
  Age: 58 Year
  Sex: Female

DRUGS (2)
  1. MABTHERA [Suspect]
     Indication: DIFFUSE LARGE B-CELL LYMPHOMA
     Dosage: 500 MG, Q3W
     Route: 042
     Dates: start: 20110401, end: 20110801
  2. PREDNISOLONE [Concomitant]
     Indication: PREMEDICATION
     Dosage: UNK
     Dates: start: 20110401, end: 20110801

REACTIONS (2)
  - NEPHROLITHIASIS [None]
  - URINARY TRACT INFECTION [None]
